FAERS Safety Report 7169868-2 (Version None)
Quarter: 2010Q4

REPORT INFORMATION
  Report Type: 
  Country: None (occurrence: None)
  Receive Date: 20101217
  Receipt Date: 20101210
  Transmission Date: 20110411
  Serious: Yes (Hospitalization, Other)
  Sender: FDA-Public Use
  Company Number: PHHY2010US63187

PATIENT
  Sex: Male
  Weight: 15.7 kg

DRUGS (2)
  1. TOBI [Suspect]
     Dosage: 300 MG BID EVERY OTHER MONTH
  2. CIPRO [Concomitant]

REACTIONS (6)
  - BRONCHITIS [None]
  - BRONCHOPULMONARY ASPERGILLOSIS ALLERGIC [None]
  - COUGH [None]
  - INFECTIVE PULMONARY EXACERBATION OF CYSTIC FIBROSIS [None]
  - PULMONARY FUNCTION TEST ABNORMAL [None]
  - VIRAL UPPER RESPIRATORY TRACT INFECTION [None]
